FAERS Safety Report 4506489-1 (Version None)
Quarter: 2004Q4

REPORT INFORMATION
  Report Type: 
  Country: None (occurrence: None)
  Receive Date: 20041122
  Receipt Date: 20041111
  Transmission Date: 20050328
  Serious: Yes (Hospitalization)
  Sender: FDA-Public Use
  Company Number: AU-ABBOTT-04P-008-0280369-00

PATIENT
  Sex: Male

DRUGS (5)
  1. EPILIM TABLETS [Suspect]
     Indication: CONVULSION
     Route: 048
  2. RANITIDINE HYDROCHLORIDE [Suspect]
     Route: 048
  3. SERTRALINE HYDROCHLORIDE [Suspect]
     Indication: DRUG USE FOR UNKNOWN INDICATION
     Route: 048
  4. DONEPEZIL HCL [Suspect]
     Indication: DEMENTIA ALZHEIMER'S TYPE
     Route: 048
  5. CABERGOLINE [Suspect]
     Indication: DRUG USE FOR UNKNOWN INDICATION
     Route: 048

REACTIONS (1)
  - IMPAIRED GASTRIC EMPTYING [None]
